FAERS Safety Report 6788753-9 (Version None)
Quarter: 2010Q2

REPORT INFORMATION
  Report Type: 
  Country: None (occurrence: None)
  Receive Date: 20100623
  Receipt Date: 20080509
  Transmission Date: 20101027
  Serious: No
  Sender: FDA-Public Use
  Company Number: US-PFIZER INC-2008040630

PATIENT
  Sex: Male
  Weight: 98.88 kg

DRUGS (4)
  1. GEODON [Suspect]
     Indication: AFFECT LABILITY
     Dates: start: 20080401
  2. CLOMIPRAMINE [Interacting]
     Indication: OBSESSIVE-COMPULSIVE DISORDER
     Route: 048
     Dates: start: 20080507, end: 20080508
  3. LAMICTAL [Concomitant]
     Indication: BIPOLAR DISORDER
  4. ANAFRANIL [Concomitant]
     Indication: DEPRESSION

REACTIONS (8)
  - CONFUSIONAL STATE [None]
  - DRUG INTERACTION [None]
  - FEELING ABNORMAL [None]
  - FEELING HOT [None]
  - HOT FLUSH [None]
  - PARAESTHESIA [None]
  - PERFORMANCE STATUS DECREASED [None]
  - SOMNOLENCE [None]
